FAERS Safety Report 18963532 (Version 2)
Quarter: 2021Q1

REPORT INFORMATION
  Report Type: Report from Study
  Country: PL (occurrence: PL)
  Receive Date: 20210303
  Receipt Date: 20210316
  Transmission Date: 20210420
  Serious: Yes (Hospitalization)
  Sender: FDA-Public Use
  Company Number: PL-B.I. PHARMACEUTICALS,INC./RIDGEFIELD-2021-BI-085993

PATIENT
  Age: 78 Year
  Sex: Female
  Weight: 69.3 kg

DRUGS (13)
  1. TRITACE [Concomitant]
     Active Substance: RAMIPRIL
     Indication: CARDIAC FAILURE
     Route: 048
     Dates: start: 20110214
  2. DORETA [Concomitant]
     Active Substance: ACETAMINOPHEN\TRAMADOL HYDROCHLORIDE
     Indication: INTERVERTEBRAL DISC DEGENERATION
     Dosage: 1 DOSAGE FORM 1 IN 1 DAY
     Route: 048
     Dates: start: 20190710
  3. ACENOCUMAROL [Concomitant]
     Active Substance: ACENOCOUMAROL
     Indication: PROPHYLAXIS
     Route: 048
     Dates: start: 20150917, end: 20210116
  4. DALACIN C [CLINDAMYCIN PALMITATE HYDROCHLORIDE] [Concomitant]
     Active Substance: CLINDAMYCIN PALMITATE HYDROCHLORIDE
     Indication: PHARYNGITIS
     Route: 048
     Dates: start: 20200103
  5. FURAGINUM [Concomitant]
     Active Substance: FURAZIDINE
     Indication: URETHRITIS
     Route: 048
     Dates: start: 20201204
  6. BIOSOTAL [Concomitant]
     Indication: CARDIAC FAILURE
     Route: 048
  7. TORAMIDE [Concomitant]
     Indication: CARDIAC FAILURE
     Route: 048
     Dates: start: 20150917
  8. MILURIT [Concomitant]
     Active Substance: ALLOPURINOL
     Indication: HYPERURICAEMIA
     Route: 048
     Dates: start: 20150917
  9. RYTMONORM [Concomitant]
     Active Substance: PROPAFENONE
     Indication: ATRIAL FIBRILLATION
     Route: 048
     Dates: start: 20150917
  10. CONTROLOC [Concomitant]
     Active Substance: PANTOPRAZOLE SODIUM
     Indication: GASTRITIS PROPHYLAXIS
     Route: 048
     Dates: start: 20150917
  11. PLACEBO [Suspect]
     Active Substance: UNSPECIFIED INGREDIENT
     Indication: CARDIAC FAILURE
     Route: 048
     Dates: start: 20181011, end: 20201204
  12. SUVARDIO [Concomitant]
     Active Substance: ROSUVASTATIN CALCIUM
     Indication: HYPERTENSION
     Route: 048
     Dates: start: 20150917
  13. BETASERC [Concomitant]
     Active Substance: BETAHISTINE
     Indication: TRANSIENT ISCHAEMIC ATTACK
     Route: 048
     Dates: start: 20110214

REACTIONS (2)
  - Gastrointestinal haemorrhage [Recovered/Resolved]
  - Iron deficiency anaemia [Recovered/Resolved]

NARRATIVE: CASE EVENT DATE: 20210116
